FAERS Safety Report 4764931-5 (Version None)
Quarter: 2005Q3

REPORT INFORMATION
  Report Type: 
  Country: None (occurrence: None)
  Receive Date: 20050909
  Receipt Date: 20050706
  Transmission Date: 20060218
  Serious: Yes (Other)
  Sender: FDA-Public Use
  Company Number: US-ROCHE-410162

PATIENT
  Age: 20 Year
  Sex: Female
  Weight: 49.9 kg

DRUGS (3)
  1. ACCUTANE [Suspect]
     Route: 048
     Dates: start: 19860615, end: 19870615
  2. ACCUTANE [Suspect]
     Dosage: REPORTED AS CAPSULES
     Route: 048
     Dates: start: 20041015
  3. ISOTRETINOIN [Suspect]
     Route: 048
     Dates: end: 20050215

REACTIONS (13)
  - ANGER [None]
  - CHAPPED LIPS [None]
  - DEPRESSION [None]
  - DRY EYE [None]
  - DRY SKIN [None]
  - EMOTIONAL DISORDER [None]
  - HAEMORRHAGE [None]
  - HAIR TEXTURE ABNORMAL [None]
  - MOOD ALTERED [None]
  - PARANOIA [None]
  - SKIN CHAPPED [None]
  - SKIN FISSURES [None]
  - UNEVALUABLE EVENT [None]
